FAERS Safety Report 23798496 (Version 1)
Quarter: 2024Q2

REPORT INFORMATION
  Report Type: Spontaneous
  Country: CN (occurrence: CN)
  Receive Date: 20240430
  Receipt Date: 20240430
  Transmission Date: 20240716
  Serious: Yes (Other)
  Sender: FDA-Public Use
  Company Number: CN-BAYER-2024A063828

PATIENT
  Age: 30 Year
  Sex: Male
  Weight: 90 kg

DRUGS (1)
  1. AVELOX [Suspect]
     Active Substance: MOXIFLOXACIN HYDROCHLORIDE
     Indication: Pneumonia
     Dosage: 400 MG, QD
     Route: 048
     Dates: start: 20240426, end: 20240426

REACTIONS (9)
  - Hypersensitivity [Recovering/Resolving]
  - Face oedema [Recovering/Resolving]
  - Photophobia [Recovering/Resolving]
  - Chest discomfort [Recovering/Resolving]
  - Urticaria [Recovering/Resolving]
  - Conjunctival hyperaemia [Recovering/Resolving]
  - Conjunctival oedema [Recovering/Resolving]
  - Erythema [Recovered/Resolved]
  - Periorbital oedema [Recovering/Resolving]

NARRATIVE: CASE EVENT DATE: 20240426
